FAERS Safety Report 16036609 (Version 4)
Quarter: 2019Q4

REPORT INFORMATION
  Report Type: Spontaneous
  Country: US (occurrence: US)
  Receive Date: 20190305
  Receipt Date: 20191007
  Transmission Date: 20200122
  Serious: No
  Sender: FDA-Public Use
  Company Number: US-BIOGEN-2019BI00704481

PATIENT
  Sex: Male

DRUGS (1)
  1. TYSABRI [Suspect]
     Active Substance: NATALIZUMAB
     Indication: MULTIPLE SCLEROSIS
     Route: 065
     Dates: start: 20120130, end: 20190814

REACTIONS (8)
  - Anxiety [Unknown]
  - Hemianaesthesia [Unknown]
  - Visual impairment [Unknown]
  - Malaise [Unknown]
  - Asthenia [Unknown]
  - Prescribed underdose [Not Recovered/Not Resolved]
  - Fatigue [Unknown]
  - Tremor [Unknown]
